FAERS Safety Report 6190841-5 (Version None)
Quarter: 2009Q2

REPORT INFORMATION
  Report Type: 
  Country: None (occurrence: None)
  Receive Date: 20090514
  Receipt Date: 20090512
  Transmission Date: 20091009
  Serious: Yes (Hospitalization)
  Sender: FDA-Public Use
  Company Number: US-GILEAD-2009-0021946

PATIENT
  Sex: Female

DRUGS (17)
  1. LETAIRIS [Suspect]
     Indication: PULMONARY ARTERIAL HYPERTENSION
     Route: 048
     Dates: start: 20090117
  2. REVATIO [Concomitant]
  3. ASPIRIN [Concomitant]
  4. LISINOPRIL [Concomitant]
  5. COZAAR [Concomitant]
  6. DILTIAZEM [Concomitant]
  7. LASIX [Concomitant]
  8. METOLAZONE [Concomitant]
  9. POTASSIUM CHLORIDE [Concomitant]
  10. HYDROCODONE BITARTRATE [Concomitant]
  11. CLONIDINE [Concomitant]
  12. NEXIUM [Concomitant]
  13. XANAX [Concomitant]
  14. HYDRALAZINE HCL [Concomitant]
  15. CENTRUM SILVER [Concomitant]
  16. REFRESH [Concomitant]
  17. TYLENOL [Concomitant]

REACTIONS (1)
  - GOUT [None]
